FAERS Safety Report 9136641 (Version 1)
Quarter: 2013Q1

REPORT INFORMATION
  Report Type: Spontaneous
  Country: US (occurrence: US)
  Receive Date: 20130304
  Receipt Date: 20130304
  Transmission Date: 20140127
  Serious: No
  Sender: FDA-Public Use
  Company Number: US-ABBOTT-12P-163-0997535-00

PATIENT
  Age: 47 None
  Sex: Male

DRUGS (1)
  1. ANDROGEL [Suspect]
     Indication: BLOOD TESTOSTERONE DECREASED
     Dosage: 4 PUMPS
     Route: 061
     Dates: start: 2011

REACTIONS (3)
  - Drug screen positive [Not Recovered/Not Resolved]
  - Drug screen positive [Not Recovered/Not Resolved]
  - Drug screen positive [Not Recovered/Not Resolved]
